FAERS Safety Report 23030171 (Version 1)
Quarter: 2023Q4

REPORT INFORMATION
  Report Type: Spontaneous
  Country: US (occurrence: US)
  Receive Date: 20231005
  Receipt Date: 20231005
  Transmission Date: 20240110
  Serious: Yes (Hospitalization, Other)
  Sender: FDA-Public Use
  Company Number: US-IPCA LABORATORIES LIMITED-IPC-2023-US-001680

PATIENT

DRUGS (3)
  1. HYDROXYCHLOROQUINE [Suspect]
     Active Substance: HYDROXYCHLOROQUINE
     Indication: Product used for unknown indication
     Dosage: UNK
     Route: 065
  2. IVERMECTIN [Suspect]
     Active Substance: IVERMECTIN
     Indication: Prostate cancer
     Dosage: 80 TO 120 MG DAILY
     Route: 065
  3. FENBENDAZOLE [Suspect]
     Active Substance: FENBENDAZOLE
     Indication: Prostate cancer
     Dosage: UNK
     Route: 065

REACTIONS (11)
  - Electrocardiogram QT prolonged [Recovering/Resolving]
  - Torsade de pointes [Unknown]
  - Syncope [Unknown]
  - Unresponsive to stimuli [Unknown]
  - Vomiting [Unknown]
  - Disorientation [Unknown]
  - Postictal state [Unknown]
  - Dyskinesia [Unknown]
  - Tachyarrhythmia [Unknown]
  - Accidental exposure to product [Unknown]
  - Toxicity to various agents [Unknown]
